FAERS Safety Report 19505386 (Version 2)
Quarter: 2021Q4

REPORT INFORMATION
  Report Type: Spontaneous
  Country: US (occurrence: US)
  Receive Date: 20210708
  Receipt Date: 20211201
  Transmission Date: 20220303
  Serious: Yes (Other)
  Sender: FDA-Public Use
  Company Number: US-UCBSA-2021013122

PATIENT
  Sex: Female

DRUGS (1)
  1. CIMZIA [Suspect]
     Active Substance: CERTOLIZUMAB PEGOL
     Indication: Rheumatoid arthritis
     Dosage: 200 MILLIGRAM, EV 2 WEEKS(QOW)
     Route: 058
     Dates: start: 201803, end: 2021

REACTIONS (6)
  - Staphylococcal infection [Unknown]
  - Eye infection [Not Recovered/Not Resolved]
  - Ear infection [Not Recovered/Not Resolved]
  - COVID-19 immunisation [Unknown]
  - Fatigue [Unknown]
  - Therapeutic product effect decreased [Unknown]

NARRATIVE: CASE EVENT DATE: 20210101
